FAERS Safety Report 24132433 (Version 1)
Quarter: 2024Q3

REPORT INFORMATION
  Report Type: Spontaneous
  Country: ES (occurrence: ES)
  Receive Date: 20240724
  Receipt Date: 20240724
  Transmission Date: 20241016
  Serious: Yes (Other)
  Sender: MYLAN
  Company Number: ES-SA-2023SA330854

PATIENT
  Age: 73 Year
  Sex: Male

DRUGS (5)
  1. LEFLUNOMIDE [Suspect]
     Active Substance: LEFLUNOMIDE
     Indication: Psoriatic arthropathy
     Dosage: 20 MILLIGRAM, QD
     Route: 065
  2. PREDNISONE [Suspect]
     Active Substance: PREDNISONE
     Indication: Psoriatic arthropathy
     Dosage: 2.5 MILLIGRAM, QD (QD,LOW-DOSE)
     Route: 065
  3. PREDNISONE [Suspect]
     Active Substance: PREDNISONE
     Dosage: 5 MILLIGRAM, QD (QD,LOW-DOSE)
     Route: 065
  4. TERIPARATIDE [Suspect]
     Active Substance: TERIPARATIDE
     Indication: Osteoporosis
     Dosage: 20 MICROGRAM, QD
     Route: 065
  5. CALCIFEDIOL [Concomitant]
     Active Substance: CALCIFEDIOL
     Indication: Vitamin D deficiency
     Dosage: 266 MICROGRAM
     Route: 065

REACTIONS (5)
  - Disseminated tuberculosis [Recovered/Resolved]
  - Encephalitis [Recovered/Resolved]
  - Osteoporosis [Recovering/Resolving]
  - Thoracic vertebral fracture [Unknown]
  - Blood 25-hydroxycholecalciferol decreased [Recovering/Resolving]

NARRATIVE: CASE EVENT DATE: 20121101
